FAERS Safety Report 4341157-0 (Version None)
Quarter: 2004Q2

REPORT INFORMATION
  Report Type: 
  Country: None (occurrence: None)
  Receive Date: 20040413
  Receipt Date: 20040329
  Transmission Date: 20050107
  Serious: Yes (Other)
  Sender: FDA-Public Use
  Company Number: 2004-BP-02515PF

PATIENT
  Age: 80 Year
  Sex: Female

DRUGS (1)
  1. SPIRIVA [Suspect]
     Indication: ASTHMA
     Dosage: 18 MCG (18 MCG); IN
     Route: 055
     Dates: start: 20030301

REACTIONS (2)
  - ELECTROCARDIOGRAM ABNORMAL [None]
  - VENTRICULAR EXTRASYSTOLES [None]
